FAERS Safety Report 10922271 (Version 1)
Quarter: 2015Q1

REPORT INFORMATION
  Report Type: Spontaneous
  Country: US (occurrence: US)
  Receive Date: 20150317
  Receipt Date: 20150317
  Transmission Date: 20150721
  Serious: No
  Sender: FDA-Public Use
  Company Number: US-BAUSCH-SYM-2014-23074

PATIENT
  Sex: Male

DRUGS (2)
  1. CARBIDOPA/LEVODOPA [Concomitant]
     Active Substance: CARBIDOPA\LEVODOPA
  2. TASMAR [Suspect]
     Active Substance: TOLCAPONE
     Indication: PARKINSON^S DISEASE
     Route: 048

REACTIONS (1)
  - Liver function test abnormal [Unknown]
